FAERS Safety Report 14174136 (Version 1)
Quarter: 2017Q4

REPORT INFORMATION
  Report Type: Spontaneous
  Country: FI (occurrence: FI)
  Receive Date: 20171109
  Receipt Date: 20171109
  Transmission Date: 20180321
  Serious: Yes (Hospitalization)
  Sender: FDA-Public Use
  Company Number: FI-GUERBET-FI-20170020

PATIENT
  Age: 8 Year
  Sex: Female

DRUGS (1)
  1. DOTAREM [Suspect]
     Active Substance: GADOTERATE MEGLUMINE
     Indication: PRODUCT USED FOR UNKNOWN INDICATION
     Route: 042
     Dates: start: 20171016, end: 20171016

REACTIONS (3)
  - Nausea [Unknown]
  - Vomiting [Unknown]
  - Rash macular [Unknown]

NARRATIVE: CASE EVENT DATE: 20171016
